FAERS Safety Report 4816482-7 (Version None)
Quarter: 2005Q4

REPORT INFORMATION
  Report Type: 
  Country: None (occurrence: None)
  Receive Date: 20051028
  Receipt Date: 20051021
  Transmission Date: 20060501
  Serious: Yes (Hospitalization)
  Sender: FDA-Public Use
  Company Number: HQWYE156221OCT05

PATIENT
  Age: 54 Year
  Sex: Female

DRUGS (7)
  1. INIPOMP (PANTOPRAZOLE, TABLET, DELAYED RELEASE) [Suspect]
     Dosage: 20 MG 1X PER 1 DAY, ORAL
     Route: 048
     Dates: end: 20050901
  2. FOSAMAX [Suspect]
     Dosage: 70 MG 1X PER 1 DAY, ORAL; ^SOME WEEK^
     Route: 048
     Dates: start: 20050608, end: 20050801
  3. PREDNISONE [Concomitant]
  4. CALCIUM CARBONATE (CALCIUM CARBONATE0 [Concomitant]
  5. COLECALCIFEROL (COLECALCIFERONL) [Concomitant]
  6. SYMBICORT (BUDESONIDE/FORMOTEROL FUMARATE) [Concomitant]
  7. MEHTYLPREDNISOLONE (METHYLPREDNISOLONE) [Concomitant]

REACTIONS (3)
  - CYTOLYTIC HEPATITIS [None]
  - HEPATIC NECROSIS [None]
  - HEPATITIS ACUTE [None]
